FAERS Safety Report 5705131-1 (Version None)
Quarter: 2008Q2

REPORT INFORMATION
  Report Type: 
  Country: None (occurrence: None)
  Receive Date: 20080414
  Receipt Date: 20080409
  Transmission Date: 20081010
  Serious: Yes (Hospitalization)
  Sender: FDA-Public Use
  Company Number: US-MERCK-0803USA04994

PATIENT
  Age: 50 Year
  Sex: Female

DRUGS (7)
  1. JANUVIA [Suspect]
     Indication: TYPE 2 DIABETES MELLITUS
     Route: 048
     Dates: start: 20080201, end: 20080301
  2. JANUVIA [Suspect]
     Route: 048
     Dates: start: 20080325, end: 20080325
  3. LANOXIN [Concomitant]
     Route: 065
  4. ZETIA [Concomitant]
     Route: 065
  5. PLAVIX [Concomitant]
     Route: 065
  6. BETAPACE [Concomitant]
     Route: 065
  7. GLIPIZIDE [Concomitant]
     Route: 065

REACTIONS (1)
  - CEREBROVASCULAR ACCIDENT [None]
